FAERS Safety Report 15672201 (Version 3)
Quarter: 2019Q4

REPORT INFORMATION
  Report Type: Report from Study
  Country: US (occurrence: US)
  Receive Date: 20181129
  Receipt Date: 20191023
  Transmission Date: 20200122
  Serious: Yes (Life-Threatening, Other)
  Sender: FDA-Public Use
  Company Number: US-TESARO, INC-US-2017TSO04569

PATIENT
  Sex: Female

DRUGS (3)
  1. NIRAPARIB CAPSULE [Suspect]
     Active Substance: NIRAPARIB
     Indication: OVARIAN CANCER
     Dosage: 300 MG, QD
     Route: 048
     Dates: start: 201710, end: 201711
  2. NIRAPARIB CAPSULE [Suspect]
     Active Substance: NIRAPARIB
     Dosage: 200 MG, QD AM W/O FOOD
     Route: 048
     Dates: start: 20171211
  3. AMLODIPINE MESILATE W/HYDROCHLOROTHIAZIDE/VAL [Concomitant]
     Indication: HYPERTENSION
     Dosage: UNK
     Dates: start: 20171115

REACTIONS (6)
  - Platelet count decreased [Recovered/Resolved]
  - Product dose omission [Unknown]
  - Nasopharyngitis [Unknown]
  - Hypertension [Recovering/Resolving]
  - Anaemia [Unknown]
  - Emotional distress [Unknown]
